FAERS Safety Report 10725110 (Version 1)
Quarter: 2015Q1

REPORT INFORMATION
  Report Type: Spontaneous
  Country: US (occurrence: US)
  Receive Date: 20150120
  Receipt Date: 20150120
  Transmission Date: 20150721
  Serious: No
  Sender: FDA-Public Use
  Company Number: US-GILEAD-2015-0132451

PATIENT
  Age: 62 Year
  Sex: Male

DRUGS (3)
  1. RIBAVIRIN. [Concomitant]
     Active Substance: RIBAVIRIN
  2. SOVALDI [Suspect]
     Active Substance: SOFOSBUVIR
     Indication: HEPATITIS C
     Dosage: 400 MG, QD
     Route: 048
  3. PEGASYS [Concomitant]
     Active Substance: PEGINTERFERON ALFA-2A

REACTIONS (5)
  - Fatigue [Unknown]
  - Pruritus [Unknown]
  - Weight decreased [Unknown]
  - Pyrexia [Unknown]
  - Dyspnoea [Unknown]
